FAERS Safety Report 17414739 (Version 2)
Quarter: 2020Q1

REPORT INFORMATION
  Report Type: Report from Study
  Country: None (occurrence: US)
  Receive Date: 20200213
  Receipt Date: 20200323
  Transmission Date: 20200409
  Serious: Yes (Other)
  Sender: FDA-Public Use
  Company Number: US-ABBVIE-20P-163-3268040-00

PATIENT
  Sex: Male

DRUGS (2)
  1. IMBRUVICA [Suspect]
     Active Substance: IBRUTINIB
     Indication: CHRONIC LYMPHOCYTIC LEUKAEMIA
     Route: 048
     Dates: start: 20190930
  2. IMBRUVICA [Suspect]
     Active Substance: IBRUTINIB
     Route: 048
     Dates: start: 202003

REACTIONS (10)
  - Dyspnoea [Unknown]
  - Memory impairment [Unknown]
  - Anxiety [Unknown]
  - Pain in extremity [Unknown]
  - Depression [Unknown]
  - Lung infiltration [Unknown]
  - Cellulitis [Unknown]
  - Mood altered [Unknown]
  - Upper-airway cough syndrome [Not Recovered/Not Resolved]
  - Sinus disorder [Not Recovered/Not Resolved]
